FAERS Safety Report 4404778-2 (Version None)
Quarter: 2004Q3

REPORT INFORMATION
  Report Type: 
  Country: None (occurrence: None)
  Receive Date: 20040722
  Receipt Date: 20040714
  Transmission Date: 20050211
  Serious: Yes (Hospitalization)
  Sender: FDA-Public Use
  Company Number: PHNR2004AU01225

PATIENT
  Age: 55 Year
  Sex: Female

DRUGS (8)
  1. TRILEPTAL [Suspect]
     Indication: EPILEPSY
     Dosage: 300MG MANE,350MG NOCTE
  2. TEGRETOL-XR [Suspect]
     Indication: EPILEPSY
     Dosage: 800MG MANE, 400MG NOCTE
     Route: 048
  3. VITAMIN D [Concomitant]
  4. CALCIUM [Concomitant]
  5. ARTANE [Concomitant]
     Dosage: 2 MG, TID
  6. TOPIRMATE [Concomitant]
     Dosage: 100 MG, BID
  7. PHENOBARBITONE [Concomitant]
     Dosage: 60 MG, TID
  8. ACETAMINOPHEN [Concomitant]

REACTIONS (2)
  - HIP ARTHROPLASTY [None]
  - STAPHYLOCOCCAL INFECTION [None]
